FAERS Safety Report 7964453 (Version 9)
Quarter: 2013Q3

REPORT INFORMATION
  Report Type: Spontaneous
  Country: US (occurrence: US)
  Receive Date: 20110527
  Receipt Date: 20130809
  Transmission Date: 20140515
  Serious: Yes (Hospitalization, Other)
  Sender: FDA-Public Use
  Company Number: US-ROCHE-760837

PATIENT
  Age: 16 Year
  Sex: Female
  Weight: 40.8 kg

DRUGS (1)
  1. ACCUTANE [Suspect]
     Indication: ACNE
     Route: 048
     Dates: start: 199611, end: 199704

REACTIONS (14)
  - Crohn^s disease [Unknown]
  - Anaemia [Unknown]
  - Depression [Unknown]
  - Bipolar disorder [Unknown]
  - Intestinal obstruction [Unknown]
  - Rectal polyp [Unknown]
  - Inflammatory bowel disease [Unknown]
  - Irritable bowel syndrome [Unknown]
  - Oropharyngeal pain [Unknown]
  - Vulvovaginal mycotic infection [Unknown]
  - Eczema asteatotic [Unknown]
  - Dry skin [Unknown]
  - Xerosis [Unknown]
  - Blood cholesterol increased [Unknown]
